APPROVED DRUG PRODUCT: QUETIAPINE FUMARATE
Active Ingredient: QUETIAPINE FUMARATE
Strength: EQ 400MG BASE
Dosage Form/Route: TABLET, EXTENDED RELEASE;ORAL
Application: A202228 | Product #005
Applicant: RISING PHARMA HOLDINGS INC
Approved: Feb 2, 2021 | RLD: No | RS: No | Type: DISCN